FAERS Safety Report 8395431-1 (Version None)
Quarter: 2012Q2

REPORT INFORMATION
  Report Type: 
  Country: None (occurrence: None)
  Receive Date: 20120530
  Receipt Date: 20120524
  Transmission Date: 20120825
  Serious: Yes (Hospitalization)
  Sender: FDA-Public Use
  Company Number: JP-SANOFI-AVENTIS-2012SA037135

PATIENT
  Age: 80 Year
  Sex: Male
  Weight: 49 kg

DRUGS (2)
  1. OXALIPLATIN [Suspect]
     Indication: GASTRIC CANCER
     Route: 041
     Dates: start: 20110905
  2. TS-1 [Suspect]
     Indication: GASTRIC CANCER
     Route: 048
     Dates: start: 20110905

REACTIONS (1)
  - HYDRONEPHROSIS [None]
